FAERS Safety Report 4445268-0 (Version None)
Quarter: 2004Q3

REPORT INFORMATION
  Report Type: 
  Country: None (occurrence: None)
  Receive Date: 20040823
  Receipt Date: 20031106
  Transmission Date: 20050211
  Serious: Yes (Other)
  Sender: FDA-Public Use
  Company Number: CIP03002990

PATIENT
  Age: 32 Year
  Sex: Female
  Weight: 57.1 kg

DRUGS (3)
  1. ASACOL [Suspect]
     Indication: COLITIS MICROSCOPIC
     Dosage: 2400 MG THREE TIMES DAILY, ORAL
     Route: 048
     Dates: start: 20021201, end: 20030306
  2. TYLENOL [Concomitant]
  3. ALEVE [Concomitant]

REACTIONS (5)
  - FATIGUE [None]
  - HAEMATOCRIT DECREASED [None]
  - HAEMOGLOBIN DECREASED [None]
  - HEPATITIS TOXIC [None]
  - NAUSEA [None]
